FAERS Safety Report 7044578-0 (Version None)
Quarter: 2010Q4

REPORT INFORMATION
  Report Type: 
  Country: None (occurrence: None)
  Receive Date: 20101014
  Receipt Date: 20101012
  Transmission Date: 20110411
  Serious: Yes (Death, Other)
  Sender: FDA-Public Use
  Company Number: FR-WYE-G06566910

PATIENT
  Sex: Male
  Weight: 98 kg

DRUGS (8)
  1. PIPERACILLIN AND TAZOBACTAM [Suspect]
     Indication: FEBRILE NEUTROPENIA
     Dosage: UNKNOWN
     Route: 042
     Dates: start: 20100730, end: 20100801
  2. PIPERACILLIN AND TAZOBACTAM [Suspect]
     Dosage: 12 G TOTAL DAILY
     Route: 042
     Dates: start: 20100810, end: 20100824
  3. AMBISOME [Suspect]
     Dosage: 300 MG TOTAL DAILY
     Route: 042
     Dates: start: 20100820, end: 20100824
  4. BACTRIM [Concomitant]
     Dosage: UNKNOWN
     Route: 042
     Dates: start: 20100730
  5. VANCOMYCIN [Suspect]
     Dosage: 4.5 G TOTAL DAILY
     Route: 042
     Dates: start: 20100812, end: 20100825
  6. ZOVIRAX [Concomitant]
     Dosage: 2 G TOTAL DAILY
     Route: 042
     Dates: start: 20100730
  7. CANCIDAS [Suspect]
     Dosage: 70 MG TOTAL DAILY
     Route: 042
     Dates: start: 20100811, end: 20100819
  8. NOXAFIL [Suspect]
     Dosage: UNKNOWN
     Dates: end: 20100814

REACTIONS (5)
  - CONFUSIONAL STATE [None]
  - CYTOLYTIC HEPATITIS [None]
  - HEPATOTOXICITY [None]
  - JAUNDICE CHOLESTATIC [None]
  - NEUROTOXICITY [None]
